FAERS Safety Report 5101432-9 (Version None)
Quarter: 2006Q3

REPORT INFORMATION
  Report Type: 
  Country: None (occurrence: None)
  Receive Date: 20060911
  Receipt Date: 20060901
  Transmission Date: 20061208
  Serious: Yes (Other)
  Sender: FDA-Public Use
  Company Number: GB-GLAXOSMITHKLINE-B0437296A

PATIENT
  Age: 5 Year
  Sex: Male

DRUGS (2)
  1. AMOXICILLIN [Suspect]
     Indication: LOWER RESPIRATORY TRACT INFECTION
     Dosage: 125MG THREE TIMES PER DAY
     Route: 048
     Dates: start: 20060316, end: 20060323
  2. PIRITON [Concomitant]
     Dosage: 1MG FOUR TIMES PER DAY
     Dates: start: 20060124

REACTIONS (4)
  - ERYTHEMA [None]
  - NONSPECIFIC REACTION [None]
  - PRURITUS [None]
  - RASH MACULO-PAPULAR [None]
